FAERS Safety Report 18255675 (Version 1)
Quarter: 2020Q3

REPORT INFORMATION
  Report Type: Spontaneous
  Country: NL (occurrence: NL)
  Receive Date: 20200911
  Receipt Date: 20200911
  Transmission Date: 20201103
  Serious: Yes (Life-Threatening)
  Sender: FDA-Public Use
  Company Number: NL-SUN PHARMACEUTICAL INDUSTRIES LTD-2020RR-260472

PATIENT
  Sex: Female

DRUGS (4)
  1. SERTRALINE [Suspect]
     Active Substance: SERTRALINE HYDROCHLORIDE
     Indication: PANIC DISORDER
     Dosage: 1DD1
     Route: 065
     Dates: start: 20200810, end: 20200812
  2. QUETIAPINE FUMARAAT / BRAND NAME NOT SPECIFIEDQUETIAPINE FUMARAAT [Concomitant]
     Indication: PRODUCT USED FOR UNKNOWN INDICATION
     Dosage: ()
     Route: 065
  3. ALPRAZOLAM TABLET 0,25MG / BRAND NAME NOT SPECIFIEDALPRAZOLAM TABLE... [Concomitant]
     Indication: PRODUCT USED FOR UNKNOWN INDICATION
     Dosage: TABLET, 0,25 MG (MILLIGRAM) ()
     Route: 065
  4. MIRTAZAPINE TABLET 30MG / BRAND NAME NOT SPECIFIEDMIRTAZAPINE TABLE... [Concomitant]
     Indication: PRODUCT USED FOR UNKNOWN INDICATION
     Dosage: TABLET, 30 MG (MILLIGRAM) ()
     Route: 065

REACTIONS (2)
  - Suicidal behaviour [Recovered/Resolved]
  - Suicidal ideation [Recovered/Resolved]
